FAERS Safety Report 21037694 (Version 1)
Quarter: 2022Q3

REPORT INFORMATION
  Report Type: Spontaneous
  Country: AU (occurrence: AU)
  Receive Date: 20220704
  Receipt Date: 20220704
  Transmission Date: 20221027
  Serious: Yes (Other)
  Sender: FDA-Public Use
  Company Number: AU-NOVARTISPH-NVSC2022AU151237

PATIENT
  Sex: Female

DRUGS (2)
  1. BEOVU [Suspect]
     Active Substance: BROLUCIZUMAB-DBLL
     Indication: Neovascular age-related macular degeneration
     Dosage: 6 MG, Q4W (3 LOADING DOSES)
     Route: 042
  2. BEOVU [Suspect]
     Active Substance: BROLUCIZUMAB-DBLL
     Dosage: 6 MG, Q8W (MAINTANENCE DOSE)
     Route: 042

REACTIONS (3)
  - Subretinal fluid [Not Recovered/Not Resolved]
  - COVID-19 [Unknown]
  - Visual impairment [Not Recovered/Not Resolved]
